FAERS Safety Report 6755536-5 (Version None)
Quarter: 2010Q2

REPORT INFORMATION
  Report Type: 
  Country: None (occurrence: None)
  Receive Date: 20100604
  Receipt Date: 20100527
  Transmission Date: 20101027
  Serious: Yes (Hospitalization)
  Sender: FDA-Public Use
  Company Number: CA-ASTRAZENECA-2009SE31937

PATIENT
  Age: 68 Year
  Sex: Female
  Weight: 54 kg

DRUGS (6)
  1. CRESTOR [Suspect]
     Indication: BLOOD CHOLESTEROL INCREASED
     Route: 048
     Dates: start: 20040101, end: 20100101
  2. CRESTOR [Suspect]
     Route: 048
     Dates: start: 20100101
  3. MAVIK [Concomitant]
     Indication: HYPERTENSION
     Dates: start: 20090501
  4. ADALAT CC [Concomitant]
     Indication: HYPERTENSION
     Dates: start: 20090601
  5. MEVACOR [Concomitant]
     Indication: BLOOD CHOLESTEROL
     Dates: end: 20040101
  6. EZETROL [Concomitant]
     Indication: BLOOD CHOLESTEROL
     Dates: start: 20070101

REACTIONS (3)
  - MYALGIA [None]
  - RENAL CANCER STAGE I [None]
  - TYPE 2 DIABETES MELLITUS [None]
